FAERS Safety Report 4802344-8 (Version None)
Quarter: 2005Q4

REPORT INFORMATION
  Report Type: 
  Country: None (occurrence: None)
  Receive Date: 20051012
  Receipt Date: 20050930
  Transmission Date: 20060501
  Serious: Yes (Life-Threatening, Other)
  Sender: FDA-Public Use
  Company Number: HWQYE808103OCT05

PATIENT
  Age: 75 Year
  Sex: Female

DRUGS (6)
  1. PROPRANOLOL HYDROCHLORIDE [Suspect]
     Indication: MYOCARDIAL ISCHAEMIA
     Dosage: 40 MG 1X PER 1 DAY
     Route: 048
     Dates: start: 20050705, end: 20050708
  2. AMLODIPINE [Concomitant]
  3. CAPTOPRIL [Concomitant]
  4. ASPIRIN [Concomitant]
  5. SOLINITRINA (GLYCERYL TRINITRATE) [Concomitant]
  6. DURAGESIC-100 [Concomitant]

REACTIONS (1)
  - ATRIOVENTRICULAR BLOCK COMPLETE [None]
